FAERS Safety Report 12732854 (Version 2)
Quarter: 2016Q3

REPORT INFORMATION
  Report Type: Spontaneous
  Country: DK (occurrence: DK)
  Receive Date: 20160912
  Receipt Date: 20160921
  Transmission Date: 20161109
  Serious: Yes (Hospitalization)
  Sender: FDA-Public Use
  Company Number: DK-MYLANLABS-2016M1038166

PATIENT

DRUGS (1)
  1. KETAMINE [Suspect]
     Active Substance: KETAMINE
     Indication: PRODUCT USED FOR UNKNOWN INDICATION
     Dosage: RECENTLY INCREASED THE DOSE TO APPROXIMATELY 1G/DAY
     Route: 065

REACTIONS (4)
  - Pollakiuria [Unknown]
  - Drug abuse [Unknown]
  - Haematuria [Unknown]
  - Abdominal pain [Unknown]
